FAERS Safety Report 17638503 (Version 1)
Quarter: 2020Q2

REPORT INFORMATION
  Report Type: Spontaneous
  Country: US (occurrence: US)
  Receive Date: 20200407
  Receipt Date: 20200407
  Transmission Date: 20200713
  Serious: Yes (Hospitalization)
  Sender: FDA-Public Use
  Company Number: US-MYLANLABS-2020M1035031

PATIENT
  Age: 59 Year
  Sex: Male

DRUGS (3)
  1. CLONIDINE. [Suspect]
     Active Substance: CLONIDINE
     Indication: HYPERTENSION
     Dosage: 0.1 MILLIGRAM, TID
     Route: 065
  2. HYDRALAZINE [Concomitant]
     Active Substance: HYDRALAZINE HYDROCHLORIDE
     Indication: HYPERTENSION
     Dosage: 100 MILLIGRAM, TID
     Route: 065
  3. VERAPAMIL [Suspect]
     Active Substance: VERAPAMIL HYDROCHLORIDE
     Indication: HYPERTENSION
     Dosage: 180 MILLIGRAM, BID
     Route: 065

REACTIONS (2)
  - Sinus bradycardia [Recovered/Resolved]
  - Extrasystoles [Unknown]
